FAERS Safety Report 16012518 (Version 2)
Quarter: 2019Q1

REPORT INFORMATION
  Report Type: Spontaneous
  Country: US (occurrence: JP)
  Receive Date: 20190227
  Receipt Date: 20190313
  Transmission Date: 20190418
  Serious: Yes (Hospitalization)
  Sender: FDA-Public Use
  Company Number: US-SUNOVION-2019SUN000787

PATIENT
  Age: 75 Year
  Sex: Male

DRUGS (4)
  1. AMLODIPINE [Concomitant]
     Active Substance: AMLODIPINE BESYLATE
     Indication: PRODUCT USED FOR UNKNOWN INDICATION
     Dosage: UNK
     Route: 048
  2. INDACATEROL AND GLYCOPYRROLATE [Suspect]
     Active Substance: GLYCOPYRROLATE\INDACATEROL MALEATE
     Indication: CHRONIC OBSTRUCTIVE PULMONARY DISEASE
     Dosage: 1 DF, UNK
     Route: 055
     Dates: start: 20190206, end: 20190206
  3. BAYASPIRIN [Concomitant]
     Active Substance: ASPIRIN
     Indication: PRODUCT USED FOR UNKNOWN INDICATION
     Dosage: UNK
     Route: 065
  4. NEXIUM [Concomitant]
     Active Substance: ESOMEPRAZOLE MAGNESIUM
     Indication: PRODUCT USED FOR UNKNOWN INDICATION
     Dosage: 20 MG, UNK
     Route: 048
     Dates: start: 20180827

REACTIONS (3)
  - Nausea [Recovered/Resolved]
  - Dyspnoea [Unknown]
  - Cardiac function test abnormal [Unknown]

NARRATIVE: CASE EVENT DATE: 20190206
